FAERS Safety Report 16803559 (Version 1)
Quarter: 2019Q3

REPORT INFORMATION
  Report Type: Spontaneous
  Country: FR (occurrence: FR)
  Receive Date: 20190913
  Receipt Date: 20190913
  Transmission Date: 20191005
  Serious: Yes (Hospitalization)
  Sender: FDA-Public Use
  Company Number: FR-ZYDUS-040493

PATIENT
  Age: 53 Year
  Sex: Male
  Weight: 61 kg

DRUGS (9)
  1. XEPLION [Suspect]
     Active Substance: PALIPERIDONE PALMITATE
     Indication: DELIRIUM
     Dosage: VARIABLE ()
     Route: 030
     Dates: start: 20190702, end: 20190709
  2. FERROUS SULFATE/FOLIC ACID/MUCOPROTEOSE [Concomitant]
     Indication: MINERAL SUPPLEMENTATION
     Route: 048
     Dates: start: 20190724
  3. RISPERIDONE. [Suspect]
     Active Substance: RISPERIDONE
     Indication: DELIRIUM
     Route: 048
     Dates: start: 20190618, end: 20190702
  4. MACROGOL/POTASSIUM CHLORIDE/SODIUM BICARBONATE/SODIUM CHLORIDE [Concomitant]
     Indication: CONSTIPATION
     Route: 048
     Dates: start: 20190726
  5. ASCORBIC ACID/COLECALCIFEROL/DEXPANTHENOL/NICOTINAMIDE/PYRIDOXINE HYDROCHLORIDE/RETINOL/RIBOFLAVIN/T [Concomitant]
     Indication: VITAMIN SUPPLEMENTATION
     Route: 048
     Dates: start: 20190725
  6. EFFIZINC [Concomitant]
     Active Substance: ZINC GLUCONATE
     Indication: MINERAL SUPPLEMENTATION
     Route: 048
     Dates: start: 20190725
  7. FOLATE SODIUM/FOLIC ACID [Concomitant]
     Indication: VITAMIN SUPPLEMENTATION
     Route: 048
     Dates: start: 20190724
  8. PAROXETINE/PAROXETINE HYDROCHLORIDE/PAROXETINE MESILATE [Concomitant]
     Indication: DEPRESSION
     Route: 048
     Dates: start: 20190618
  9. THERALENE [Suspect]
     Active Substance: TRIMEPRAZINE
     Indication: INSOMNIA
     Route: 048
     Dates: start: 20190722, end: 20190728

REACTIONS (1)
  - Catatonia [Recovered/Resolved]

NARRATIVE: CASE EVENT DATE: 20190802
